FAERS Safety Report 15436546 (Version 1)
Quarter: 2018Q3

REPORT INFORMATION
  Report Type: Spontaneous
  Country: DE (occurrence: DE)
  Receive Date: 20180927
  Receipt Date: 20180927
  Transmission Date: 20181010
  Serious: Yes (Hospitalization)
  Sender: FDA-Public Use
  Company Number: DE-PFIZER INC-2018385724

PATIENT
  Age: 67 Year
  Sex: Male
  Weight: 90 kg

DRUGS (3)
  1. EUTHYROX [Concomitant]
     Active Substance: LEVOTHYROXINE SODIUM
     Indication: HYPOTHYROIDISM
     Dosage: DAILY DOSE: 137 UG EVERY DAYS
     Route: 048
  2. TAMSULOSIN [Concomitant]
     Active Substance: TAMSULOSIN
     Indication: BENIGN PROSTATIC HYPERPLASIA
     Dosage: DAILY DOSE: 0.4 MG EVERY DAYS
     Route: 048
  3. INLYTA [Suspect]
     Active Substance: AXITINIB
     Indication: RENAL CELL CARCINOMA
     Dosage: DAILY DOSE: 10 MG EVERY DAYS
     Route: 048
     Dates: start: 20180817

REACTIONS (4)
  - Language disorder [Recovered/Resolved]
  - Hemiparesis [Recovered/Resolved]
  - Sinus bradycardia [Recovered/Resolved]
  - Transient ischaemic attack [Recovered/Resolved]

NARRATIVE: CASE EVENT DATE: 201808
